FAERS Safety Report 14138697 (Version 4)
Quarter: 2021Q3

REPORT INFORMATION
  Report Type: Spontaneous
  Country: FR (occurrence: FR)
  Receive Date: 20171027
  Receipt Date: 20210914
  Transmission Date: 20211014
  Serious: Yes (Hospitalization, Other)
  Sender: FDA-Public Use
  Company Number: FR-ABBVIE-17P-056-2144294-00

PATIENT
  Age: 50 Year
  Sex: Male

DRUGS (3)
  1. ISOTRETINOIN. [Suspect]
     Active Substance: ISOTRETINOIN
     Indication: SKIN DISORDER
     Route: 065
     Dates: start: 201012, end: 2012
  2. ISOTRETINOIN. [Suspect]
     Active Substance: ISOTRETINOIN
     Route: 065
     Dates: start: 2012, end: 201206
  3. DEPAKINE CHRONO [Suspect]
     Active Substance: VALPROATE SODIUM
     Indication: EPILEPSY
     Dosage: QD
     Route: 048
     Dates: start: 2008, end: 20191008

REACTIONS (17)
  - Depression suicidal [Not Recovered/Not Resolved]
  - Migraine [Recovered/Resolved]
  - Depression [Recovering/Resolving]
  - Bipolar disorder [Unknown]
  - Tendonitis [Not Recovered/Not Resolved]
  - Epilepsy [Not Recovered/Not Resolved]
  - Deafness [Unknown]
  - Headache [Recovered/Resolved]
  - Inflammation [Not Recovered/Not Resolved]
  - Somnolence [Not Recovered/Not Resolved]
  - Malaise [Recovering/Resolving]
  - Tremor [Recovering/Resolving]
  - Headache [Unknown]
  - Gastrointestinal inflammation [Not Recovered/Not Resolved]
  - Alopecia [Recovering/Resolving]
  - Emotional distress [Recovering/Resolving]
  - Onychomadesis [Not Recovered/Not Resolved]

NARRATIVE: CASE EVENT DATE: 2012
